FAERS Safety Report 25730917 (Version 1)
Quarter: 2025Q3

REPORT INFORMATION
  Report Type: Report from Study
  Country: MX (occurrence: MX)
  Receive Date: 20250827
  Receipt Date: 20250827
  Transmission Date: 20251021
  Serious: Yes (Disabling, Other)
  Sender: NOVARTIS
  Company Number: MX-002147023-NVSC2025MX133001

PATIENT
  Age: 70 Year
  Sex: Male

DRUGS (2)
  1. TASIGNA [Suspect]
     Active Substance: NILOTINIB
     Indication: Chronic myeloid leukaemia
     Dosage: UNK, QD (3 CAPSULES DAILY)
     Route: 048
     Dates: start: 2020
  2. TASIGNA [Suspect]
     Active Substance: NILOTINIB
     Dosage: UNK, QD (2 CAPSULES DAILY)
     Route: 065

REACTIONS (5)
  - Gait disturbance [Unknown]
  - Hemiplegia [Unknown]
  - Infarction [Unknown]
  - Speech disorder [Unknown]
  - Dysphemia [Unknown]

NARRATIVE: CASE EVENT DATE: 20241114
